FAERS Safety Report 20316218 (Version 1)
Quarter: 2022Q1

REPORT INFORMATION
  Report Type: Other
  Country: US (occurrence: None)
  Receive Date: 20220110
  Receipt Date: 20220110
  Transmission Date: 20220423
  Serious: No
  Sender: FDA-Public Use
  Company Number: US-ROCHE-2822269

PATIENT
  Sex: Male

DRUGS (7)
  1. RITUXIMAB [Suspect]
     Active Substance: RITUXIMAB
     Indication: Lymphoproliferative disorder
     Route: 065
  2. SODIUM BICARBONATE [Concomitant]
     Active Substance: SODIUM BICARBONATE
     Dosage: 4.4 MEQ/KG/DAY
  3. LEVOCARNITINE [Concomitant]
     Active Substance: LEVOCARNITINE
  4. THIAMINE [Concomitant]
     Active Substance: THIAMINE
  5. FOLATE SODIUM [Concomitant]
     Active Substance: FOLATE SODIUM
  6. BIOTIN [Concomitant]
     Active Substance: BIOTIN
  7. ACETYLCYSTEINE [Concomitant]
     Active Substance: ACETYLCYSTEINE
     Dosage: (70 MG/KG/DAY)

REACTIONS (1)
  - Hypogammaglobulinaemia [Unknown]
